FAERS Safety Report 6692887-7 (Version None)
Quarter: 2010Q2

REPORT INFORMATION
  Report Type: 
  Country: None (occurrence: None)
  Receive Date: 20100422
  Receipt Date: 20100412
  Transmission Date: 20101027
  Serious: Yes (Hospitalization)
  Sender: FDA-Public Use
  Company Number: US-ABBOTT-10P-163-0637793-00

PATIENT
  Sex: Female
  Weight: 74.456 kg

DRUGS (7)
  1. HUMIRA [Suspect]
     Indication: CROHN'S DISEASE
     Dates: start: 20081101, end: 20090201
  2. HUMIRA [Suspect]
     Route: 058
     Dates: start: 20090201
  3. VALIUM [Suspect]
     Indication: CROHN'S DISEASE
     Route: 048
  4. LORTAB [Concomitant]
     Indication: CROHN'S DISEASE
  5. PROTONIX [Concomitant]
     Indication: GASTRIC DISORDER
  6. PREDNISONE [Concomitant]
     Indication: CROHN'S DISEASE
     Route: 048
  7. PHENERGAN [Concomitant]
     Indication: NAUSEA

REACTIONS (9)
  - CAESAREAN SECTION [None]
  - COUGH [None]
  - DRUG EXPOSURE DURING PREGNANCY [None]
  - FISTULA [None]
  - MALAISE [None]
  - PLACENTA PRAEVIA [None]
  - PREGNANCY [None]
  - PREMATURE LABOUR [None]
  - STAPHYLOCOCCAL INFECTION [None]
